FAERS Safety Report 8408779-9 (Version None)
Quarter: 2012Q2

REPORT INFORMATION
  Report Type: 
  Country: None (occurrence: None)
  Receive Date: 20120604
  Receipt Date: 20120522
  Transmission Date: 20120825
  Serious: Yes (Hospitalization)
  Sender: FDA-Public Use
  Company Number: TH-ELI_LILLY_AND_COMPANY-TH201205008335

PATIENT
  Age: 78 Year
  Sex: Female

DRUGS (2)
  1. ZYPREXA [Suspect]
     Dosage: 5 MG, BID
  2. CLONAZEPAM [Concomitant]
     Dosage: 0.5 MG, QD
     Dates: end: 20120520

REACTIONS (2)
  - HOSPITALISATION [None]
  - LOSS OF CONSCIOUSNESS [None]
